FAERS Safety Report 5938630-8 (Version None)
Quarter: 2008Q4

REPORT INFORMATION
  Report Type: 
  Country: None (occurrence: None)
  Receive Date: 20081103
  Receipt Date: 20081022
  Transmission Date: 20090506
  Serious: Yes (Life-Threatening, Hospitalization)
  Sender: FDA-Public Use
  Company Number: AT-ROCHE-593876

PATIENT
  Age: 17 Year
  Sex: Female

DRUGS (8)
  1. GANCICLOVIR SODIUM [Suspect]
     Dosage: INTRAVENOUSLY (4X) AND INTRATHECALLY (3X)
     Route: 042
  2. RITUXIMAB [Suspect]
     Dosage: INTRAVENOUSLY (4X) AND INTRATHECALLY (3X)
     Route: 042
  3. IMMUNOGLOBULIN INJECTABLE [Suspect]
     Dosage: INTRAVENOUSLY (4X) AND INTRATHECALLY (3X)
     Route: 042
  4. CIDOFOVIR [Suspect]
     Dosage: INTRAVENOUSLY (4X) AND INTRATHECALLY (3X)
     Route: 042
  5. DEXAMETHASONE 0.5MG TAB [Suspect]
     Dosage: SPECIFIC THERAPY INCLUDING DEXAMETHASONE, WEEKLY VP-16 (4X)
     Route: 065
  6. INFLIXIMAB [Suspect]
     Dosage: SPECIFIC THERAPY.  INFLIXIMAB (1X).
     Route: 065
  7. MELPHALAN [Concomitant]
  8. FLUDARABINE PHOSPHATE [Concomitant]

REACTIONS (5)
  - CONVULSION [None]
  - DRUG INEFFECTIVE [None]
  - HEMIPARESIS [None]
  - HISTIOCYTOSIS HAEMATOPHAGIC [None]
  - RENAL FAILURE [None]
